FAERS Safety Report 6984565-1 (Version None)
Quarter: 2010Q3

REPORT INFORMATION
  Report Type: 
  Country: None (occurrence: None)
  Receive Date: 20100915
  Receipt Date: 20100903
  Transmission Date: 20110219
  Serious: Yes (Other)
  Sender: FDA-Public Use
  Company Number: JP-PFIZER INC-2010111576

PATIENT
  Age: 56 Year
  Sex: Female

DRUGS (6)
  1. LIPITOR [Suspect]
     Dosage: 10 MG, UNKNOWN/D
     Route: 048
     Dates: start: 20090709, end: 20090819
  2. FAMOTIDINE [Concomitant]
     Dosage: 20 MG, UNK
     Dates: start: 20100804
  3. COSPANON [Concomitant]
     Dosage: UNK
     Dates: start: 20100806
  4. URSO 250 [Concomitant]
     Dosage: UNK
     Dates: start: 20100806
  5. FLOMOX [Concomitant]
     Dosage: UNK
     Dates: start: 20100806
  6. CRESTOR [Concomitant]
     Dosage: UNK

REACTIONS (2)
  - BILIRUBINURIA [None]
  - CHROMATURIA [None]
